FAERS Safety Report 17957201 (Version 2)
Quarter: 2020Q3

REPORT INFORMATION
  Report Type: Spontaneous
  Country: HR (occurrence: HR)
  Receive Date: 20200629
  Receipt Date: 20200709
  Transmission Date: 20201103
  Serious: Yes (Other)
  Sender: FDA-Public Use
  Company Number: HR-PFIZER INC-2020247588

PATIENT
  Age: 57 Year
  Sex: Female

DRUGS (17)
  1. DAUNORUBICIN HCL [Suspect]
     Active Substance: DAUNORUBICIN HYDROCHLORIDE
     Indication: ACUTE MYELOID LEUKAEMIA
     Dosage: UNK
     Route: 065
     Dates: start: 201904
  2. RYDAPT [Suspect]
     Active Substance: MIDOSTAURIN
     Indication: ACUTE MYELOID LEUKAEMIA
     Dosage: 100 MG, DAILY(50 MG, BID,(FROM DAY 8 TO DAY 21) )
     Route: 048
     Dates: start: 201904
  3. CYTARABINE. [Suspect]
     Active Substance: CYTARABINE
     Dosage: UNK
     Route: 065
     Dates: start: 20190716, end: 20190827
  4. DAUNORUBICIN HCL [Suspect]
     Active Substance: DAUNORUBICIN HYDROCHLORIDE
     Dosage: UNK
     Route: 065
     Dates: start: 20190827, end: 20190928
  5. CYTARABINE. [Suspect]
     Active Substance: CYTARABINE
     Dosage: UNK
     Route: 065
     Dates: start: 20190513, end: 20190613
  6. DAUNORUBICIN HCL [Suspect]
     Active Substance: DAUNORUBICIN HYDROCHLORIDE
     Dosage: UNK
     Route: 065
     Dates: start: 20190513, end: 20190613
  7. AZACITIDINE. [Suspect]
     Active Substance: AZACITIDINE
     Indication: ACUTE MYELOID LEUKAEMIA
     Dosage: 1.5 UNK (G/M2 OVER 3 DAYS)
     Route: 065
     Dates: start: 20191020
  8. CYTARABINE. [Suspect]
     Active Substance: CYTARABINE
     Dosage: UNK
     Route: 065
     Dates: start: 20190614, end: 20190715
  9. DAUNORUBICIN HCL [Suspect]
     Active Substance: DAUNORUBICIN HYDROCHLORIDE
     Dosage: UNK
     Route: 065
     Dates: start: 20190716, end: 20190826
  10. RYDAPT [Suspect]
     Active Substance: MIDOSTAURIN
     Dosage: 100 MG, DAILY (50 MG, BID,(FROM DAY 8 TO DAY 21) )
     Route: 048
     Dates: start: 20190614, end: 20190715
  11. LINEZOLID. [Suspect]
     Active Substance: LINEZOLID
     Indication: ACUTE MYELOID LEUKAEMIA
     Dosage: UNK
     Route: 065
  12. DAUNORUBICIN HCL [Suspect]
     Active Substance: DAUNORUBICIN HYDROCHLORIDE
     Dosage: UNK
     Route: 065
     Dates: start: 20190614, end: 20190715
  13. RYDAPT [Suspect]
     Active Substance: MIDOSTAURIN
     Dosage: 100 MG, DAILY (50 MG, BID,(FROM DAY 8 TO DAY 21) )
     Route: 048
     Dates: start: 20190716, end: 20190826
  14. RYDAPT [Suspect]
     Active Substance: MIDOSTAURIN
     Dosage: 100 MG, DAILY (50 MG, BID,(FROM DAY 8 TO DAY 21) )
     Route: 048
     Dates: start: 20190513, end: 20190613
  15. CYTARABINE. [Suspect]
     Active Substance: CYTARABINE
     Indication: ACUTE MYELOID LEUKAEMIA
     Dosage: UNK
     Route: 065
     Dates: start: 201904
  16. CYTARABINE. [Suspect]
     Active Substance: CYTARABINE
     Dosage: UNK
     Route: 065
     Dates: start: 20190828, end: 20190928
  17. RYDAPT [Suspect]
     Active Substance: MIDOSTAURIN
     Dosage: 100 MG, DAILY (50 MG, BID,(FROM DAY 8 TO DAY 21) )
     Route: 048
     Dates: start: 20190827, end: 20190928

REACTIONS (7)
  - Rash [Unknown]
  - Pruritus [Unknown]
  - Urticaria [Unknown]
  - Product use in unapproved indication [Unknown]
  - Off label use [Unknown]
  - Chloroma [Unknown]
  - Acute myeloid leukaemia recurrent [Unknown]

NARRATIVE: CASE EVENT DATE: 201904
